FAERS Safety Report 9387105 (Version 1)
Quarter: 2013Q3

REPORT INFORMATION
  Report Type: Spontaneous
  Country: US (occurrence: US)
  Receive Date: 20130708
  Receipt Date: 20130708
  Transmission Date: 20140515
  Serious: Yes (Death, Other)
  Sender: FDA-Public Use
  Company Number: PHHY2013US070441

PATIENT
  Age: 61 Year
  Sex: Male

DRUGS (8)
  1. TACROLIMUS [Suspect]
     Indication: IMMUNOSUPPRESSION
     Dosage: 0.1 MG, BID
  2. TACROLIMUS [Suspect]
     Dosage: 0.05 MG, UNK
  3. PREDNISONE [Suspect]
     Indication: IMMUNOSUPPRESSION
     Dosage: 10 MG DAILY
  4. PREDNISONE [Suspect]
     Dosage: 5 MG DAILY
  5. CYTARABINE [Suspect]
     Dosage: 2 MG/KG DAILY FOR 5 DAYS
  6. POSACONAZOLE [Concomitant]
     Indication: INFECTION PROPHYLAXIS
  7. VALGANCICLOVIR [Concomitant]
     Indication: INFECTION PROPHYLAXIS
  8. PENTAMIDINE [Concomitant]
     Indication: INFECTION PROPHYLAXIS

REACTIONS (20)
  - Progressive multifocal leukoencephalopathy [Fatal]
  - Asthenia [Fatal]
  - Peroneal nerve palsy [Fatal]
  - Loss of control of legs [Fatal]
  - Hyporeflexia [Fatal]
  - Paraesthesia [Fatal]
  - Cognitive disorder [Fatal]
  - Amnesia [Fatal]
  - Aphasia [Fatal]
  - Hemiparesis [Fatal]
  - Convulsion [Fatal]
  - Neurological symptom [Fatal]
  - JC virus infection [Fatal]
  - Respiratory failure [Fatal]
  - Hypoxia [Fatal]
  - Lung infiltration [Fatal]
  - Lung transplant rejection [Unknown]
  - Pancytopenia [Unknown]
  - Neutropenia [Unknown]
  - Drug ineffective [Unknown]
